FAERS Safety Report 20553464 (Version 2)
Quarter: 2022Q1

REPORT INFORMATION
  Report Type: Spontaneous
  Country: JP (occurrence: JP)
  Receive Date: 20220304
  Receipt Date: 20220323
  Transmission Date: 20220424
  Serious: Yes (Other)
  Sender: FDA-Public Use
  Company Number: JP-MSD-M2022-08044

PATIENT
  Age: 5 Decade
  Sex: Female

DRUGS (5)
  1. KEYTRUDA [Suspect]
     Active Substance: PEMBROLIZUMAB
     Indication: Triple negative breast cancer
     Dosage: 200 MILLIGRAM, Q3W
     Route: 041
     Dates: start: 20220114
  2. GEMCITABINE HYDROCHLORIDE [Concomitant]
     Active Substance: GEMCITABINE HYDROCHLORIDE
     Indication: Triple negative breast cancer
     Dosage: 1000 MILLIGRAM, QW
     Route: 041
     Dates: start: 20220114, end: 2022
  3. GEMCITABINE HYDROCHLORIDE [Concomitant]
     Active Substance: GEMCITABINE HYDROCHLORIDE
     Dosage: 800 MILLIGRAM, QW
     Route: 041
     Dates: start: 202202
  4. CARBOPLATIN [Concomitant]
     Active Substance: CARBOPLATIN
     Indication: Triple negative breast cancer
     Dosage: 2 INTERNATIONAL UNIT, QW
     Route: 041
     Dates: start: 20220114, end: 2022
  5. CARBOPLATIN [Concomitant]
     Active Substance: CARBOPLATIN
     Dosage: 1.6 INTERNATIONAL UNIT, QW
     Route: 041
     Dates: start: 202202

REACTIONS (3)
  - Myelosuppression [Not Recovered/Not Resolved]
  - Malignant neoplasm progression [Unknown]
  - Immune-mediated hepatic disorder [Recovering/Resolving]

NARRATIVE: CASE EVENT DATE: 20220101
